FAERS Safety Report 4867873-X (Version None)
Quarter: 2005Q4

REPORT INFORMATION
  Report Type: 
  Country: None (occurrence: None)
  Receive Date: 20051228
  Receipt Date: 20051221
  Transmission Date: 20060501
  Serious: Yes (Disabling)
  Sender: FDA-Public Use
  Company Number: AU-ABBOTT-05P-008-0320427-00

PATIENT
  Sex: Male

DRUGS (4)
  1. EPILIM [Suspect]
     Indication: BIPOLAR DISORDER
     Route: 048
     Dates: start: 20000801
  2. MIRTAZAPINE [Concomitant]
     Indication: DEPRESSION
     Route: 048
     Dates: start: 20011001
  3. FLUVOXAMINE MALEATE [Concomitant]
     Indication: DEPRESSION
     Route: 048
     Dates: start: 20000501, end: 20010101
  4. OLANZAPINE [Concomitant]
     Indication: DRUG USE FOR UNKNOWN INDICATION
     Route: 048
     Dates: start: 20000101, end: 20000101

REACTIONS (1)
  - SPERM COUNT DECREASED [None]
